FAERS Safety Report 8242805-5 (Version None)
Quarter: 2012Q1

REPORT INFORMATION
  Report Type: 
  Country: None (occurrence: None)
  Receive Date: 20120329
  Receipt Date: 20120320
  Transmission Date: 20120608
  Serious: Yes (Hospitalization)
  Sender: FDA-Public Use
  Company Number: US-BAYER-2011-114245

PATIENT
  Age: 21 Year
  Sex: Female
  Weight: 63.492 kg

DRUGS (13)
  1. FLUOXETINE [Concomitant]
     Indication: DEPRESSION
     Dosage: 20 MG, UNK
     Route: 048
     Dates: start: 20080728, end: 20090924
  2. CARISOPRODOL [Concomitant]
     Indication: MUSCLE RELAXANT THERAPY
     Dosage: 350 MG, UNK
     Route: 048
     Dates: start: 20090924
  3. YAZ [Suspect]
     Indication: MENSTRUAL CYCLE MANAGEMENT
     Dosage: UNK
     Dates: start: 20070701, end: 20080901
  4. PROZAC [Concomitant]
  5. SERTRALINE HYDROCHLORIDE [Concomitant]
     Indication: DEPRESSION
     Dosage: 50 MG, UNK
     Route: 048
     Dates: start: 20080101, end: 20090701
  6. YAZ [Suspect]
     Indication: CONTRACEPTION
  7. MIRTAZAPINE [Concomitant]
     Indication: DEPRESSION
     Dosage: 15 MG, UNK
     Route: 048
     Dates: start: 20090301, end: 20091001
  8. MIRTAZAPINE [Concomitant]
     Dosage: 15 MG, UNK
     Route: 048
     Dates: start: 20090618, end: 20090924
  9. YAZ [Suspect]
     Indication: ACNE
     Dosage: UNK
     Dates: start: 20090415, end: 20090925
  10. REMERON [Concomitant]
  11. YAZ [Suspect]
     Indication: PREMENSTRUAL SYNDROME
  12. IBUPROFEN [Concomitant]
     Indication: ANALGESIC THERAPY
     Dosage: UNK
     Route: 048
     Dates: start: 20090924
  13. SERTRALINE HYDROCHLORIDE [Concomitant]
     Dosage: 50 MG, UNK
     Route: 048
     Dates: start: 20090618, end: 20090924

REACTIONS (8)
  - PULMONARY EMBOLISM [None]
  - GENERAL PHYSICAL HEALTH DETERIORATION [None]
  - PAIN IN EXTREMITY [None]
  - EMOTIONAL DISTRESS [None]
  - PAIN [None]
  - ANXIETY [None]
  - MENTAL DISORDER [None]
  - DEEP VEIN THROMBOSIS [None]
